FAERS Safety Report 4617681-X (Version None)
Quarter: 2005Q1

REPORT INFORMATION
  Report Type: 
  Country: None (occurrence: None)
  Receive Date: 20050322
  Receipt Date: 20050304
  Transmission Date: 20050727
  Serious: Yes (Hospitalization, Other)
  Sender: FDA-Public Use
  Company Number: 2005-BP-03439BP

PATIENT
  Age: 40 Day
  Sex: Male

DRUGS (1)
  1. VIRAMUNE [Suspect]
     Indication: HIV INFECTION
     Dosage: 0.7 ML (200 MG) PO
     Route: 048
     Dates: start: 20020624, end: 20020624

REACTIONS (8)
  - ANAEMIA [None]
  - COUGH [None]
  - DRUG EXPOSURE DURING PREGNANCY [None]
  - EYE DISCHARGE [None]
  - HYPERSENSITIVITY [None]
  - IRRITABILITY [None]
  - PYREXIA [None]
  - RASH MACULO-PAPULAR [None]
